FAERS Safety Report 26001408 (Version 1)
Quarter: 2025Q4

REPORT INFORMATION
  Report Type: Spontaneous
  Country: US (occurrence: US)
  Receive Date: 20251105
  Receipt Date: 20251105
  Transmission Date: 20260117
  Serious: Yes (Other)
  Sender: PFIZER
  Company Number: US-PFIZER INC-PV202500128776

PATIENT
  Age: 61 Year
  Sex: Female

DRUGS (6)
  1. LEVOTHYROXINE SODIUM [Suspect]
     Active Substance: LEVOTHYROXINE SODIUM
     Indication: Hypothyroidism
     Dosage: UNK
  2. LEVOTHYROXINE SODIUM [Suspect]
     Active Substance: LEVOTHYROXINE SODIUM
     Dosage: UNK
     Dates: start: 202509
  3. IRON [Concomitant]
     Active Substance: IRON
     Dosage: UNK
     Dates: start: 202509
  4. TABRECTA [Concomitant]
     Active Substance: CAPMATINIB
     Indication: Neoplasm malignant
     Dosage: UNK
     Dates: start: 20251019
  5. TABRECTA [Concomitant]
     Active Substance: CAPMATINIB
     Indication: Anaplastic lymphoma kinase gene mutation
  6. COLCHICINE [Concomitant]
     Active Substance: COLCHICINE
     Indication: Pericarditis
     Dosage: UNK
     Dates: start: 20250906

REACTIONS (2)
  - Hypothyroidism [Not Recovered/Not Resolved]
  - Condition aggravated [Not Recovered/Not Resolved]
